FAERS Safety Report 22037856 (Version 4)
Quarter: 2023Q2

REPORT INFORMATION
  Report Type: Spontaneous
  Country: JP (occurrence: JP)
  Receive Date: 20230227
  Receipt Date: 20230426
  Transmission Date: 20230722
  Serious: Yes (Hospitalization)
  Sender: FDA-Public Use
  Company Number: JP-MSD-2302JPN003418J

PATIENT
  Age: 15 Year
  Weight: 47 kg

DRUGS (7)
  1. TEMODAL [Suspect]
     Active Substance: TEMOZOLOMIDE
     Indication: Ewing-like sarcoma
     Dosage: 150 MILLIGRAM CYCLICAL?
     Route: 048
     Dates: start: 20221201
  2. ABEMACICLIB [Suspect]
     Active Substance: ABEMACICLIB
     Indication: Ewing-like sarcoma
     Dosage: 75 MILLIGRAM, BID
     Route: 048
     Dates: start: 20221201, end: 20230211
  3. IRINOTECAN [Suspect]
     Active Substance: IRINOTECAN
     Indication: Ewing-like sarcoma
     Dosage: 75 MILLIGRAM CYCLICAL
     Route: 042
     Dates: start: 20221201
  4. SULFAMETHOXAZOLE\TRIMETHOPRIM [Concomitant]
     Active Substance: SULFAMETHOXAZOLE\TRIMETHOPRIM
     Dosage: UNK
     Route: 065
     Dates: start: 20221201
  5. CEFIXIME [Concomitant]
     Active Substance: CEFIXIME
     Dosage: UNK
     Route: 065
     Dates: start: 20221201
  6. GRANISETRON HYDROCHLORIDE [Concomitant]
     Active Substance: GRANISETRON HYDROCHLORIDE
     Dosage: UNK
     Route: 065
     Dates: start: 20221201
  7. DEXAMETHASONE SODIUM PHOSPHATE [Concomitant]
     Active Substance: DEXAMETHASONE SODIUM PHOSPHATE
     Dosage: UNK
     Route: 065
     Dates: start: 20221201

REACTIONS (1)
  - Varicella zoster virus infection [Recovered/Resolved]

NARRATIVE: CASE EVENT DATE: 20230212
